FAERS Safety Report 10865278 (Version 1)
Quarter: 2015Q1

REPORT INFORMATION
  Report Type: Report from Study
  Country: US (occurrence: US)
  Receive Date: 20150224
  Receipt Date: 20150224
  Transmission Date: 20150721
  Serious: No
  Sender: FDA-Public Use
  Company Number: US-MYLANLABS-2014S1011106

PATIENT
  Sex: Female

DRUGS (6)
  1. ALOE VERA [Concomitant]
     Active Substance: ALOE VERA LEAF
     Dosage: UNK
  2. AMNESTEEM [Suspect]
     Active Substance: ISOTRETINOIN
     Dosage: 40 MG,BID
     Route: 048
     Dates: start: 201307, end: 201308
  3. AMNESTEEM [Suspect]
     Active Substance: ISOTRETINOIN
     Dosage: 40 MG,BID
     Route: 048
     Dates: start: 201308
  4. AMNESTEEM [Suspect]
     Active Substance: ISOTRETINOIN
     Indication: ACNE
  5. VYVANSE [Concomitant]
     Active Substance: LISDEXAMFETAMINE DIMESYLATE
     Dosage: 40 MG,UNK
     Route: 048
  6. MULTIVITAMIN [Concomitant]
     Active Substance: VITAMINS
     Dosage: UNK

REACTIONS (5)
  - Photosensitivity reaction [Recovered/Resolved]
  - Condition aggravated [Not Recovered/Not Resolved]
  - Lip dry [Recovered/Resolved]
  - Dehydration [Recovered/Resolved]
  - Gastroenteritis viral [Recovered/Resolved]

NARRATIVE: CASE EVENT DATE: 2013
